FAERS Safety Report 7117196-3 (Version None)
Quarter: 2010Q4

REPORT INFORMATION
  Report Type: 
  Country: None (occurrence: None)
  Receive Date: 20101122
  Receipt Date: 20101111
  Transmission Date: 20110411
  Serious: Yes (Other)
  Sender: FDA-Public Use
  Company Number: PHHY2010DE77419

PATIENT

DRUGS (1)
  1. RITALIN LA [Suspect]

REACTIONS (1)
  - CATARACT [None]
